FAERS Safety Report 5059161-6 (Version None)
Quarter: 2006Q3

REPORT INFORMATION
  Report Type: 
  Country: None (occurrence: None)
  Receive Date: 20060718
  Receipt Date: 20060708
  Transmission Date: 20061208
  Serious: Yes (Other)
  Sender: FDA-Public Use
  Company Number: 2006085321

PATIENT
  Age: 1 Day
  Sex: Female
  Weight: 2.7216 kg

DRUGS (1)
  1. NEOSPORIN [Suspect]
     Indication: ACCIDENTAL EXPOSURE
     Dosage: ONCE, TRANSMAMMARY
     Route: 063
     Dates: start: 20060708, end: 20060708

REACTIONS (3)
  - DRUG EXPOSURE VIA BREAST MILK [None]
  - NEONATAL RESPIRATORY ARREST [None]
  - VOMITING NEONATAL [None]
